FAERS Safety Report 25902929 (Version 1)
Quarter: 2025Q4

REPORT INFORMATION
  Report Type: Spontaneous
  Country: US (occurrence: None)
  Receive Date: 20251009
  Receipt Date: 20251009
  Transmission Date: 20260117
  Serious: Yes (Death)
  Sender: FDA-CTU
  Company Number: None

PATIENT
  Age: 60 Year
  Sex: Male
  Weight: 91.62 kg

DRUGS (17)
  1. LENALIDOMIDE [Suspect]
     Active Substance: LENALIDOMIDE
     Indication: Plasma cell myeloma
     Dosage: FREQUENCY : DAILY;?
     Route: 048
     Dates: start: 20250815, end: 20251006
  2. sacubitril 24 mg-valsartan 26 mg tablet [Concomitant]
  3. ACYCLOVIR [Concomitant]
     Active Substance: ACYCLOVIR
  4. aspirin 81 mg tablet,delayed release [Concomitant]
  5. DEXAMETHASONE [Concomitant]
     Active Substance: DEXAMETHASONE
  6. ondansetron HCl 4 mg Tab [Concomitant]
  7. metformin 750 mg tablet [Concomitant]
  8. TRULICITY 1.5 MG/0.5 ML PEN [Concomitant]
  9. PRASUGREL 10 MG TABLET [Concomitant]
  10. FUROSEMIDE [Concomitant]
     Active Substance: FUROSEMIDE
  11. JARDIANCE 25 MG TABLET [Concomitant]
  12. POTASSIUM CL 20MEQ ER TABLETS [Concomitant]
  13. Entresto 24 mg-26 mg tablet [Concomitant]
  14. ATORVASTATIN 10 MG TABLET [Concomitant]
  15. CARVEDILOL [Concomitant]
     Active Substance: CARVEDILOL
  16. GABAPENTIN [Concomitant]
     Active Substance: GABAPENTIN
  17. OMEPRAZOLE [Concomitant]
     Active Substance: OMEPRAZOLE

REACTIONS (1)
  - Death [None]

NARRATIVE: CASE EVENT DATE: 20251006
